FAERS Safety Report 16924034 (Version 1)
Quarter: 2019Q4

REPORT INFORMATION
  Report Type: Spontaneous
  Country: US (occurrence: US)
  Receive Date: 20191016
  Receipt Date: 20191016
  Transmission Date: 20200122
  Serious: No
  Sender: FDA-Public Use
  Company Number: US-JNJFOC-20191016225

PATIENT
  Sex: Male
  Weight: 83.99 kg

DRUGS (1)
  1. TYLENOL [Suspect]
     Active Substance: ACETAMINOPHEN
     Indication: PAIN
     Dosage: 1 TABLET/DAY WHEN FEELS ACHY
     Route: 048

REACTIONS (2)
  - Incorrect dose administered [Unknown]
  - Expired product administered [Unknown]
